FAERS Safety Report 13307811 (Version 2)
Quarter: 2017Q1

REPORT INFORMATION
  Report Type: Spontaneous
  Country: CH (occurrence: CH)
  Receive Date: 20170308
  Receipt Date: 20170309
  Transmission Date: 20170428
  Serious: Yes (Congenital Anomaly, Other)
  Sender: FDA-Public Use
  Company Number: CH-ABBVIE-17P-151-1899641-00

PATIENT
  Age: 5 Month
  Sex: Male

DRUGS (1)
  1. DEPAKINE [Suspect]
     Active Substance: VALPROATE SODIUM
     Indication: MATERNAL EXPOSURE TIMING UNSPECIFIED
     Route: 064

REACTIONS (25)
  - Tooth malformation [Not Recovered/Not Resolved]
  - Strabismus [Unknown]
  - Inguinal hernia [Not Recovered/Not Resolved]
  - Foot deformity [Not Recovered/Not Resolved]
  - Toe walking [Not Recovered/Not Resolved]
  - Premature baby [Unknown]
  - Tic [Unknown]
  - Impulsive behaviour [Unknown]
  - Cryptorchism [Recovered/Resolved]
  - Congenital nail disorder [Not Recovered/Not Resolved]
  - Foetal exposure during pregnancy [Unknown]
  - Attention deficit/hyperactivity disorder [Unknown]
  - Speech disorder [Unknown]
  - Anxiety [Unknown]
  - Neurodevelopmental disorder [Not Recovered/Not Resolved]
  - Neonatal behavioural syndrome [Recovered/Resolved]
  - Astigmatism [Not Recovered/Not Resolved]
  - Gait disturbance [Unknown]
  - Dysmorphism [Not Recovered/Not Resolved]
  - Gastrooesophageal reflux disease [Unknown]
  - Autism spectrum disorder [Unknown]
  - Congenital jaw malformation [Not Recovered/Not Resolved]
  - Retained deciduous tooth [Unknown]
  - Cyanosis [Recovered/Resolved]
  - Aggression [Unknown]

NARRATIVE: CASE EVENT DATE: 20040616
